FAERS Safety Report 8669342 (Version 4)
Quarter: 2013Q4

REPORT INFORMATION
  Report Type: Report from Study
  Country: CA (occurrence: CA)
  Receive Date: 20120717
  Receipt Date: 20131229
  Transmission Date: 20140711
  Serious: Yes (Other)
  Sender: FDA-Public Use
  Company Number: CA-ROCHE-1087425

PATIENT
  Age: 72 Year
  Sex: Female
  Weight: 39.1 kg

DRUGS (18)
  1. ACTEMRA [Suspect]
     Indication: RHEUMATOID ARTHRITIS
     Route: 042
     Dates: start: 20101112
  2. ACTEMRA [Suspect]
     Route: 065
     Dates: start: 20111012
  3. ACTEMRA [Suspect]
     Route: 065
     Dates: start: 20111212
  4. ACTEMRA [Suspect]
     Route: 042
     Dates: start: 2008, end: 201101
  5. ACTEMRA [Suspect]
     Route: 042
     Dates: start: 20110309
  6. ACTEMRA [Suspect]
     Dosage: 174 MG Q 4 WEEKS
     Route: 042
     Dates: start: 20110817
  7. METHOTREXATE [Suspect]
     Indication: RHEUMATOID ARTHRITIS
     Route: 048
     Dates: start: 200504, end: 201101
  8. FOLIC ACID [Concomitant]
  9. PREDNISONE [Concomitant]
     Indication: RHEUMATOID ARTHRITIS
     Route: 048
     Dates: start: 1999
  10. CELEBREX [Concomitant]
     Indication: RHEUMATOID ARTHRITIS
     Route: 048
     Dates: start: 2004
  11. ENTERIC COATED ACETYLSALICYLIC ACID [Concomitant]
  12. CALCITONIN [Concomitant]
     Indication: OSTEOPOROSIS
     Route: 045
     Dates: start: 2009
  13. TECTA [Concomitant]
     Indication: ABDOMINAL DISCOMFORT
     Route: 048
  14. BROMAZEPAM [Concomitant]
     Indication: INSOMNIA
     Route: 048
     Dates: start: 2011
  15. ATASOL (PARACETAMOL) [Concomitant]
     Indication: BACK PAIN
     Route: 048
  16. RALIVIA [Concomitant]
     Indication: BACK PAIN
     Route: 048
     Dates: start: 201001, end: 201208
  17. TIMOPTIC EYE DROPS [Concomitant]
  18. TOBRADEX [Concomitant]

REACTIONS (9)
  - Neutropenia [Not Recovered/Not Resolved]
  - Leukopenia [Not Recovered/Not Resolved]
  - Full blood count decreased [Unknown]
  - Weight decreased [Unknown]
  - Pain in extremity [Unknown]
  - Local swelling [Unknown]
  - Weight decreased [Not Recovered/Not Resolved]
  - Osteomyelitis [Recovering/Resolving]
  - Dizziness [Unknown]
